FAERS Safety Report 5218565-9 (Version None)
Quarter: 2007Q1

REPORT INFORMATION
  Report Type: 
  Country: None (occurrence: None)
  Receive Date: 20070122
  Receipt Date: 20070110
  Transmission Date: 20070707
  Serious: Yes (Death)
  Sender: FDA-Public Use
  Company Number: 234823

PATIENT
  Age: 74 Year
  Sex: Male

DRUGS (1)
  1. TENECTEPLASE OR PLACEBO (TENECTEPLASE) PWDR + SOLVENT, INJECTION SOLN, [Suspect]
     Indication: RESUSCITATION
     Dosage: SINGLE
     Dates: start: 20051104, end: 20051104

REACTIONS (1)
  - SEPTIC SHOCK [None]
